FAERS Safety Report 10518816 (Version 1)
Quarter: 2014Q4

REPORT INFORMATION
  Report Type: Spontaneous
  Country: BR (occurrence: BR)
  Receive Date: 20141015
  Receipt Date: 20141015
  Transmission Date: 20150528
  Serious: Yes (Other)
  Sender: FDA-Public Use
  Company Number: BR-NOVOPROD-425449

PATIENT
  Age: 34 Year
  Sex: Female

DRUGS (2)
  1. SIBUTRAMINE [Concomitant]
     Active Substance: SIBUTRAMINE
     Indication: WEIGHT CONTROL
     Dosage: UNKNOWN
     Route: 065
  2. VICTOZA [Suspect]
     Active Substance: LIRAGLUTIDE
     Indication: WEIGHT CONTROL
     Dosage: UNK
     Route: 065

REACTIONS (2)
  - Product use issue [Unknown]
  - Hepatomegaly [Unknown]
